FAERS Safety Report 7883628-6 (Version None)
Quarter: 2011Q4

REPORT INFORMATION
  Report Type: 
  Country: None (occurrence: None)
  Receive Date: 20111102
  Receipt Date: 20111031
  Transmission Date: 20120403
  Serious: Yes (Other)
  Sender: FDA-Public Use
  Company Number: US-AMGEN-USASP2011052228

PATIENT
  Age: 68 Year
  Sex: Male
  Weight: 138.69 kg

DRUGS (18)
  1. SOY ISOFLAVONES [Concomitant]
     Dosage: 40 MG, UNK
     Route: 048
  2. NPLATE [Suspect]
     Indication: IDIOPATHIC THROMBOCYTOPENIC PURPURA
     Dosage: 420 MUG, QWK
     Route: 058
     Dates: start: 20110425
  3. NPLATE [Suspect]
     Dosage: UNK
     Route: 058
  4. NPLATE [Suspect]
     Dosage: UNK
     Route: 058
  5. NPLATE [Suspect]
     Dosage: UNK
  6. HYZAAR [Concomitant]
     Indication: HYPERTENSION
     Dosage: UNK UNK, QD
     Route: 048
  7. NPLATE [Suspect]
     Dosage: UNK
     Route: 058
  8. CIPROFLOXACIN HCL [Concomitant]
     Dosage: 500 MG, BID
  9. FLOMAX [Concomitant]
     Dosage: 0.4 MG, QD
     Route: 048
  10. LORAZEPAM [Concomitant]
     Dosage: 1 MG, UNK
     Route: 048
  11. MULTIVITAMIN                       /00097801/ [Concomitant]
  12. NPLATE [Suspect]
     Dosage: UNK
     Route: 058
  13. NPLATE [Suspect]
     Dosage: UNK
     Route: 058
  14. NPLATE [Suspect]
  15. NADOLOL [Concomitant]
     Indication: HYPERTENSION
     Dosage: 80 MG, UNK
     Route: 048
  16. OXYGEN [Concomitant]
     Indication: SLEEP APNOEA SYNDROME
  17. MYCOPHENOLATE MOFETIL [Concomitant]
     Dosage: 500 MG, BID
     Route: 048
  18. NPLATE [Suspect]
     Dosage: UNK
     Route: 058

REACTIONS (5)
  - CHRONIC LYMPHOCYTIC LEUKAEMIA [None]
  - PLATELET COUNT DECREASED [None]
  - BLADDER TRANSITIONAL CELL CARCINOMA STAGE I [None]
  - SEBORRHOEIC KERATOSIS [None]
  - SKIN CANCER [None]
